FAERS Safety Report 9346713 (Version 2)
Quarter: 2013Q2

REPORT INFORMATION
  Report Type: Spontaneous
  Country: CN (occurrence: CN)
  Receive Date: 20130613
  Receipt Date: 20130625
  Transmission Date: 20140414
  Serious: Yes (Other)
  Sender: FDA-Public Use
  Company Number: CN-JNJFOC-20130605622

PATIENT
  Age: 1 Year
  Sex: Male

DRUGS (2)
  1. MOTRIN [Suspect]
     Route: 048
  2. MOTRIN [Suspect]
     Indication: PRODUCT USED FOR UNKNOWN INDICATION
     Route: 048
     Dates: start: 20121112, end: 20121114

REACTIONS (2)
  - Oliguria [Recovered/Resolved]
  - Oedema [Unknown]
